FAERS Safety Report 5881259-0 (Version None)
Quarter: 2008Q3

REPORT INFORMATION
  Report Type: 
  Country: None (occurrence: None)
  Receive Date: 20080912
  Receipt Date: 20080620
  Transmission Date: 20090109
  Serious: No
  Sender: FDA-Public Use
  Company Number: US-ABBOTT-08P-163-0459425-00

PATIENT
  Sex: Male
  Weight: 97.61 kg

DRUGS (2)
  1. HUMIRA [Suspect]
     Indication: PSORIASIS
     Route: 058
  2. IBUPROFEN [Concomitant]
     Indication: BACK PAIN
     Route: 048

REACTIONS (8)
  - DRUG DOSE OMISSION [None]
  - DRY SKIN [None]
  - ERYTHEMA [None]
  - PROCEDURAL COMPLICATION [None]
  - PRURITUS [None]
  - PSORIASIS [None]
  - SKIN DISORDER [None]
  - SKIN EXFOLIATION [None]
